FAERS Safety Report 12268026 (Version 1)
Quarter: 2016Q2

REPORT INFORMATION
  Report Type: Spontaneous
  Country: FR (occurrence: FR)
  Receive Date: 20160414
  Receipt Date: 20160414
  Transmission Date: 20160815
  Serious: Yes (Hospitalization)
  Sender: FDA-Public Use
  Company Number: FR-ASTRAZENECA-2016SE37924

PATIENT
  Age: 72 Year
  Sex: Male

DRUGS (8)
  1. BRILIQUE [Suspect]
     Active Substance: TICAGRELOR
     Indication: THROMBOSIS PROPHYLAXIS
     Route: 048
  2. DIAMICRON [Concomitant]
     Active Substance: GLICLAZIDE
     Route: 048
  3. NATISPRAY [Concomitant]
     Active Substance: NITROGLYCERIN
     Dosage: ON DEMAND
  4. KARDEGIC [Suspect]
     Active Substance: ASPIRIN LYSINE
     Indication: THROMBOSIS PROPHYLAXIS
     Route: 048
  5. APROVEL [Concomitant]
     Active Substance: IRBESARTAN
     Route: 048
  6. TAHOR [Concomitant]
     Active Substance: ATORVASTATIN CALCIUM
     Route: 048
  7. METFORMIN [Concomitant]
     Active Substance: METFORMIN HYDROCHLORIDE
     Route: 048
  8. SELOKEEN [Concomitant]
     Active Substance: METOPROLOL
     Route: 048

REACTIONS (8)
  - Pancreatitis acute [Unknown]
  - Oesophagitis haemorrhagic [Unknown]
  - Portal vein thrombosis [Unknown]
  - Systemic inflammatory response syndrome [Unknown]
  - Acute kidney injury [Unknown]
  - Haemangioma [Unknown]
  - Shock haemorrhagic [Recovered/Resolved]
  - Renal tubular necrosis [Unknown]
